FAERS Safety Report 12715708 (Version 1)
Quarter: 2016Q3

REPORT INFORMATION
  Report Type: Spontaneous
  Country: US (occurrence: US)
  Receive Date: 20160906
  Receipt Date: 20160906
  Transmission Date: 20161109
  Serious: No
  Sender: FDA-Public Use
  Company Number: US-PFIZER INC-2016405630

PATIENT
  Sex: Male

DRUGS (1)
  1. NIFEDIPINE. [Suspect]
     Active Substance: NIFEDIPINE
     Dosage: 90 MG, UNK

REACTIONS (4)
  - Oesophageal irritation [Unknown]
  - Pruritus [Unknown]
  - Product difficult to swallow [Unknown]
  - Dysphagia [Unknown]
